FAERS Safety Report 11964070 (Version 1)
Quarter: 2016Q1

REPORT INFORMATION
  Report Type: Spontaneous
  Country: US (occurrence: None)
  Receive Date: 20160121
  Receipt Date: 20160121
  Transmission Date: 20160526
  Serious: Yes (Other)
  Sender: FDA-Public Use
  Company Number: None

PATIENT
  Age: 59 Year
  Sex: Female
  Weight: 89.81 kg

DRUGS (6)
  1. TYLENOL WITH CODEINE [Concomitant]
     Active Substance: ACETAMINOPHEN\CODEINE PHOSPHATE
  2. MOTRIN [Concomitant]
     Active Substance: IBUPROFEN
  3. ATENOLOL. [Concomitant]
     Active Substance: ATENOLOL
  4. GADAVIST [Suspect]
     Active Substance: GADOBUTROL
     Indication: NUCLEAR MAGNETIC RESONANCE IMAGING
  5. ATORVASTATIN [Concomitant]
     Active Substance: ATORVASTATIN
  6. GADOLINIUM [Suspect]
     Active Substance: GADOLINIUM

REACTIONS (5)
  - Injection site mass [None]
  - Incorrect route of drug administration [None]
  - Injection site pain [None]
  - Arthralgia [None]
  - Paraesthesia [None]

NARRATIVE: CASE EVENT DATE: 20151219
